FAERS Safety Report 10120640 (Version 2)
Quarter: 2014Q2

REPORT INFORMATION
  Report Type: Spontaneous
  Country: US (occurrence: US)
  Receive Date: 20140425
  Receipt Date: 20140604
  Transmission Date: 20141212
  Serious: No
  Sender: FDA-Public Use
  Company Number: US-009507513-1404USA012404

PATIENT
  Sex: Female

DRUGS (6)
  1. PROVENTIL [Suspect]
     Indication: CHRONIC OBSTRUCTIVE PULMONARY DISEASE
     Dosage: 90 MICROGRAM /TWO PUFFS EVERY FOUR TO SIX HOURS PER DAY(1 STANDARD DOSE OF 6.7)
     Route: 055
     Dates: start: 2004
  2. HYDROCODONE [Concomitant]
     Dosage: UNK
  3. OXYCODONE [Concomitant]
     Dosage: UNK
  4. GLIMEPIRIDE [Concomitant]
     Dosage: UNK
  5. XANAX [Concomitant]
     Dosage: UNK
  6. BENZONATATE [Concomitant]
     Dosage: UNK

REACTIONS (3)
  - Pain [Unknown]
  - Drug dose omission [Unknown]
  - Product quality issue [Unknown]
